FAERS Safety Report 4542433-9 (Version None)
Quarter: 2004Q4

REPORT INFORMATION
  Report Type: 
  Country: None (occurrence: None)
  Receive Date: 20041229
  Receipt Date: 20041220
  Transmission Date: 20050328
  Serious: Yes (Other)
  Sender: FDA-Public Use
  Company Number: 2004AP000937

PATIENT
  Age: 59 Year
  Sex: Female

DRUGS (4)
  1. TIZANIDINE HYDROCHLORIDE TABLETS [Suspect]
     Indication: MIGRAINE PROPHYLAXIS
     Dosage: 8 MG; EVERY  DAY (DAILY); ORAL
     Route: 048
     Dates: start: 20041218, end: 20041220
  2. TIZANIDINE HYDROCHLORIDE TABLETS [Suspect]
     Indication: OFF LABEL USE
     Dosage: 8 MG; EVERY  DAY (DAILY); ORAL
     Route: 048
     Dates: start: 20041218, end: 20041220
  3. DONNATAL EXTENTABS [Concomitant]
  4. IBUPROFEN [Concomitant]

REACTIONS (9)
  - CHEST PAIN [None]
  - DEPRESSED LEVEL OF CONSCIOUSNESS [None]
  - DIZZINESS [None]
  - DIZZINESS POSTURAL [None]
  - DYSSTASIA [None]
  - HALLUCINATION, VISUAL [None]
  - OVERDOSE [None]
  - PHARMACEUTICAL PRODUCT COMPLAINT [None]
  - SEDATION [None]
